FAERS Safety Report 24597364 (Version 5)
Quarter: 2025Q4

REPORT INFORMATION
  Report Type: Spontaneous
  Country: US (occurrence: US)
  Receive Date: 20241110
  Receipt Date: 20251231
  Transmission Date: 20260118
  Serious: Yes (Other)
  Sender: SANOFI AVENTIS
  Company Number: US-SA-2024SA301964

PATIENT
  Age: 11 Year
  Sex: Male

DRUGS (2)
  1. DUPIXENT [Suspect]
     Active Substance: DUPILUMAB
     Indication: Asthma
     Dosage: 200 MG, QOW
     Route: 058
     Dates: start: 20240609, end: 2024
  2. DUPIXENT [Suspect]
     Active Substance: DUPILUMAB
     Dosage: 200 MG, QOW
     Route: 058
     Dates: end: 20251207

REACTIONS (14)
  - Pneumonia viral [Recovered/Resolved]
  - Illness [Recovered/Resolved]
  - Cough [Recovering/Resolving]
  - Dysphonia [Recovering/Resolving]
  - Nasal congestion [Recovering/Resolving]
  - Sneezing [Recovering/Resolving]
  - Blood immunoglobulin E decreased [Unknown]
  - Rhinorrhoea [Recovering/Resolving]
  - Viral infection [Recovered/Resolved]
  - Rhinorrhoea [Recovered/Resolved]
  - Pyrexia [Recovered/Resolved]
  - Hypersensitivity [Recovered/Resolved]
  - Asthma [Recovered/Resolved]
  - Therapeutic response decreased [Unknown]

NARRATIVE: CASE EVENT DATE: 20240901
